FAERS Safety Report 5572173-9 (Version None)
Quarter: 2007Q4

REPORT INFORMATION
  Report Type: 
  Country: None (occurrence: None)
  Receive Date: 20071221
  Receipt Date: 20071218
  Transmission Date: 20080405
  Serious: Yes (Hospitalization)
  Sender: FDA-Public Use
  Company Number: GB-MERCK-0709GBR00109

PATIENT
  Age: 54 Year
  Sex: Male
  Weight: 119 kg

DRUGS (11)
  1. ZETIA [Suspect]
     Indication: BLOOD CHOLESTEROL INCREASED
     Route: 048
     Dates: start: 20070501, end: 20070801
  2. ZETIA [Suspect]
     Route: 048
     Dates: end: 20040901
  3. ZETIA [Suspect]
     Indication: MYOCARDIAL INFARCTION
     Route: 048
     Dates: start: 20070501, end: 20070801
  4. ZETIA [Suspect]
     Route: 048
     Dates: end: 20040901
  5. ATENOLOL [Concomitant]
     Indication: HYPERTENSION
     Route: 065
  6. CARBAMAZEPINE [Concomitant]
     Indication: EPILEPSY
     Route: 065
  7. ATORVASTATIN [Concomitant]
     Route: 065
  8. GLICLAZIDE [Concomitant]
     Indication: DIABETES MELLITUS
     Route: 065
  9. METFORMIN [Concomitant]
     Route: 065
  10. OMEPRAZOLE [Concomitant]
     Route: 065
  11. TRAMADOL HYDROCHLORIDE [Concomitant]
     Indication: MYOCARDIAL ISCHAEMIA
     Route: 065

REACTIONS (2)
  - ACUTE MYELOID LEUKAEMIA [None]
  - ACUTE PROMYELOCYTIC LEUKAEMIA [None]
